FAERS Safety Report 5245045-7 (Version None)
Quarter: 2007Q1

REPORT INFORMATION
  Report Type: 
  Country: None (occurrence: None)
  Receive Date: 20070223
  Receipt Date: 20070214
  Transmission Date: 20070707
  Serious: Yes (Death, Life-Threatening)
  Sender: FDA-Public Use
  Company Number: JP-BAYER-200710113BYL

PATIENT
  Age: 86 Year
  Sex: Female
  Weight: 45 kg

DRUGS (6)
  1. CIPROXAN-I.V. [Suspect]
     Indication: URINARY TRACT INFECTION
     Dosage: TOTAL DAILY DOSE: 400 MG  UNIT DOSE: 200 MG
     Route: 041
     Dates: start: 20070123, end: 20070126
  2. SOLDEM 1 [Concomitant]
     Indication: DEHYDRATION
     Route: 041
     Dates: start: 20070123, end: 20070123
  3. SOLDEM 3A [Concomitant]
     Indication: FLUID REPLACEMENT
     Route: 041
     Dates: start: 20070123, end: 20070123
  4. SOLDEM 3AG [Concomitant]
     Indication: FLUID REPLACEMENT
     Route: 041
     Dates: start: 20070123, end: 20070125
  5. MAGLAX [Concomitant]
     Indication: CONSTIPATION
     Route: 048
     Dates: start: 20070124, end: 20070126
  6. PURSENNID [Concomitant]
     Indication: CONSTIPATION
     Route: 048
     Dates: start: 20070124, end: 20070126

REACTIONS (6)
  - DISSEMINATED INTRAVASCULAR COAGULATION [None]
  - HYPOGLYCAEMIA [None]
  - HYPOTENSION [None]
  - METABOLIC ACIDOSIS [None]
  - MULTI-ORGAN FAILURE [None]
  - RENAL IMPAIRMENT [None]
